FAERS Safety Report 16724262 (Version 1)
Quarter: 2019Q3

REPORT INFORMATION
  Report Type: Spontaneous
  Country: US (occurrence: US)
  Receive Date: 20190821
  Receipt Date: 20190821
  Transmission Date: 20191005
  Serious: Yes (Other)
  Sender: FDA-Public Use
  Company Number: US-TERSERA THERAPEUTICS LLC-2019TRS001529

PATIENT

DRUGS (1)
  1. ZOLADEX [Suspect]
     Active Substance: GOSERELIN ACETATE
     Indication: BREAST CANCER
     Dosage: 3.6 MG
     Route: 058
     Dates: start: 20190702

REACTIONS (11)
  - Rash erythematous [Recovered/Resolved]
  - Red blood cell count increased [Unknown]
  - Pruritus generalised [Not Recovered/Not Resolved]
  - Breast swelling [Unknown]
  - Swelling [Recovered/Resolved]
  - Nipple swelling [Unknown]
  - Pyrexia [Not Recovered/Not Resolved]
  - Urticaria [Unknown]
  - Nausea [Unknown]
  - Hypersensitivity [Unknown]
  - Eosinophil count increased [Unknown]

NARRATIVE: CASE EVENT DATE: 20190704
